FAERS Safety Report 20696854 (Version 1)
Quarter: 2022Q2

REPORT INFORMATION
  Report Type: Spontaneous
  Country: US (occurrence: US)
  Receive Date: 20220411
  Receipt Date: 20220411
  Transmission Date: 20220720
  Serious: No
  Sender: FDA-Public Use
  Company Number: US-Adamas_Pharmaceuticals-USA-POI1235202100049

PATIENT
  Age: 80 Year
  Sex: Male

DRUGS (2)
  1. OSMOLEX ER [Suspect]
     Active Substance: AMANTADINE
     Indication: Product used for unknown indication
     Dates: start: 2020, end: 202012
  2. OSMOLEX ER [Suspect]
     Active Substance: AMANTADINE
     Dates: start: 202012, end: 202104

REACTIONS (1)
  - Night sweats [Unknown]

NARRATIVE: CASE EVENT DATE: 20210401
